FAERS Safety Report 16897871 (Version 1)
Quarter: 2019Q4

REPORT INFORMATION
  Report Type: Spontaneous
  Country: SE (occurrence: SE)
  Receive Date: 20191009
  Receipt Date: 20191009
  Transmission Date: 20200122
  Serious: Yes (Hospitalization)
  Sender: FDA-Public Use
  Company Number: SE-TEVA-2019-SE-1118870

PATIENT
  Sex: Female

DRUGS (1)
  1. PROMETHAZINE [Suspect]
     Active Substance: PROMETHAZINE HYDROCHLORIDE
     Dosage: PROMETAZINE 100 TABLETS MAY BE DISPENSED DURING THE LAST 24 HOURS
     Route: 048
     Dates: start: 20181201, end: 20181201

REACTIONS (4)
  - Intentional overdose [Unknown]
  - Disorganised speech [Unknown]
  - Lethargy [Unknown]
  - Intentional self-injury [Unknown]

NARRATIVE: CASE EVENT DATE: 20181201
